FAERS Safety Report 4489286-5 (Version None)
Quarter: 2004Q4

REPORT INFORMATION
  Report Type: 
  Country: None (occurrence: None)
  Receive Date: 20041026
  Receipt Date: 20041021
  Transmission Date: 20050328
  Serious: Yes (Hospitalization)
  Sender: FDA-Public Use
  Company Number: FR-YAMANOUCHI-YEHQ20040367

PATIENT
  Age: 40 Year
  Sex: Male

DRUGS (8)
  1. LOCOID [Suspect]
     Indication: PHOTOSENSITIVITY REACTION
     Dosage: TO
     Route: 061
     Dates: start: 20040809, end: 20040820
  2. LOCOID [Suspect]
     Indication: SUNBURN
     Dosage: TO
     Route: 061
     Dates: start: 20040809, end: 20040820
  3. BIAFINE [Suspect]
     Indication: PHOTOSENSITIVITY REACTION
     Dosage: PO
     Route: 048
     Dates: start: 20040809, end: 20040820
  4. BIAFINE [Suspect]
     Indication: SUNBURN
     Dosage: PO
     Route: 048
     Dates: start: 20040809, end: 20040820
  5. ACETYLSALICYLIC ACID [Concomitant]
  6. SPASMINE JOLLY /OLD FORM/ [Concomitant]
  7. ALPRAZOLAM [Concomitant]
  8. ZOLPIDEM [Concomitant]

REACTIONS (1)
  - DERMATITIS BULLOUS [None]
